FAERS Safety Report 4749551-0 (Version None)
Quarter: 2005Q3

REPORT INFORMATION
  Report Type: 
  Country: None (occurrence: None)
  Receive Date: 20050822
  Receipt Date: 20050720
  Transmission Date: 20060218
  Serious: Yes (Other)
  Sender: FDA-Public Use
  Company Number: PHNU2005DE02611

PATIENT
  Sex: Male
  Weight: 84 kg

DRUGS (7)
  1. PROVAS [Suspect]
     Indication: HYPERTENSION
     Dosage: 80 MG/D
     Route: 048
     Dates: start: 20040101
  2. PROVAS [Suspect]
     Dosage: 40 MG/D
     Route: 048
  3. DIOVAN [Suspect]
     Indication: HYPERTENSION
     Dosage: 80 MG/D
     Route: 048
     Dates: start: 20030101
  4. DIOVAN [Suspect]
     Dosage: 40 MG/D
     Route: 048
  5. PROSCAR [Suspect]
     Indication: BENIGN PROSTATIC HYPERPLASIA
     Dosage: UNK, UNK
     Dates: start: 20040101
  6. SAROTEN [Suspect]
     Indication: DEPRESSION
     Route: 048
     Dates: start: 20040101
  7. CONCOR [Concomitant]
     Dosage: UNK, UNK

REACTIONS (1)
  - SYSTEMIC LUPUS ERYTHEMATOSUS RASH [None]
